FAERS Safety Report 4342934-2 (Version None)
Quarter: 2004Q1

REPORT INFORMATION
  Report Type: 
  Country: None (occurrence: None)
  Receive Date: 20040325
  Receipt Date: 20040212
  Transmission Date: 20041129
  Serious: No
  Sender: FDA-Public Use
  Company Number: USA030742780

PATIENT
  Age: 74 Year
  Sex: Female
  Weight: 45 kg

DRUGS (6)
  1. FORTEO [Suspect]
     Indication: OSTEOPOROSIS
     Dosage: 20 UG/DAY
     Dates: start: 20030725
  2. EVISTA [Suspect]
  3. MULTIVITAMIN [Concomitant]
  4. CALCIUM WITH VITAMIN D [Concomitant]
  5. PREVACID [Concomitant]
  6. VITAMIN E [Concomitant]

REACTIONS (12)
  - ABDOMINAL PAIN [None]
  - BONE PAIN [None]
  - BREAST PAIN [None]
  - COUGH [None]
  - DIZZINESS [None]
  - FEELING ABNORMAL [None]
  - INJECTION SITE BURNING [None]
  - INJECTION SITE HAEMORRHAGE [None]
  - LOOSE STOOLS [None]
  - MUSCLE CRAMP [None]
  - MUSCULOSKELETAL STIFFNESS [None]
  - NASOPHARYNGITIS [None]
